FAERS Safety Report 9463839 (Version 3)
Quarter: 2013Q3

REPORT INFORMATION
  Report Type: Spontaneous
  Country: NZ (occurrence: NZ)
  Receive Date: 20130819
  Receipt Date: 20130918
  Transmission Date: 20140515
  Serious: Yes (Other)
  Sender: FDA-Public Use
  Company Number: NZ-PFIZER INC-2013238099

PATIENT
  Age: 69 Year
  Sex: Male

DRUGS (5)
  1. IBUPROFEN [Suspect]
  2. QUINAPRIL HYDROCHLORIDE [Suspect]
  3. BENDROFLUAZIDE [Suspect]
  4. ATORVASTATIN [Concomitant]
  5. OMEPRAZOLE [Concomitant]

REACTIONS (1)
  - Renal failure acute [Unknown]
